FAERS Safety Report 7929913-0 (Version None)
Quarter: 2011Q4

REPORT INFORMATION
  Report Type: 
  Country: None (occurrence: None)
  Receive Date: 20111116
  Receipt Date: 20111104
  Transmission Date: 20120403
  Serious: Yes (Other)
  Sender: FDA-Public Use
  Company Number: JPI-P-018099

PATIENT
  Age: 57 Year
  Sex: Female
  Weight: 64.4108 kg

DRUGS (5)
  1. VALIUM [Concomitant]
  2. LISINOPRIL [Concomitant]
  3. LORTAB [Concomitant]
  4. OXYCONTIN [Concomitant]
  5. XYREM [Suspect]
     Indication: FIBROMYALGIA
     Dosage: ORAL ; 6 GM (3 GM,2 IN 1 D),ORAL
     Route: 048
     Dates: start: 20060627

REACTIONS (2)
  - AORTIC ANEURYSM [None]
  - SPINAL FRACTURE [None]
